FAERS Safety Report 9246560 (Version 1)
Quarter: 2013Q2

REPORT INFORMATION
  Report Type: Report from Study
  Country: US (occurrence: US)
  Receive Date: 20130422
  Receipt Date: 20130422
  Transmission Date: 20140414
  Serious: No
  Sender: FDA-Public Use
  Company Number: US-ABBOTT-12P-163-0946737-00

PATIENT
  Sex: Female

DRUGS (1)
  1. LUPRON DEPOT-PED 15 MG [Suspect]
     Indication: PRECOCIOUS PUBERTY
     Dates: start: 20120124

REACTIONS (4)
  - Nasopharyngitis [Unknown]
  - Dyspnoea [Unknown]
  - Pruritus generalised [Unknown]
  - Injection site swelling [Recovered/Resolved]
